FAERS Safety Report 17026036 (Version 1)
Quarter: 2019Q4

REPORT INFORMATION
  Report Type: Spontaneous
  Country: GB (occurrence: GB)
  Receive Date: 20191113
  Receipt Date: 20191113
  Transmission Date: 20200122
  Serious: Yes (Life-Threatening)
  Sender: FDA-Public Use
  Company Number: GB-ROCHE-2466542

PATIENT
  Age: 81 Year
  Sex: Male
  Weight: 69.85 kg

DRUGS (2)
  1. RITUXIMAB. [Suspect]
     Active Substance: RITUXIMAB
     Indication: CHEMOTHERAPY
     Route: 041
     Dates: start: 20181001, end: 20190401
  2. BENDAMUSTINE HYDROCHLORIDE. [Concomitant]
     Active Substance: BENDAMUSTINE HYDROCHLORIDE

REACTIONS (5)
  - Progressive multifocal leukoencephalopathy [Not Recovered/Not Resolved]
  - Hand-eye coordination impaired [Unknown]
  - Amnesia [Unknown]
  - Gait disturbance [Unknown]
  - Aphasia [Unknown]

NARRATIVE: CASE EVENT DATE: 20190701
